FAERS Safety Report 6832034-1 (Version None)
Quarter: 2010Q3

REPORT INFORMATION
  Report Type: 
  Country: None (occurrence: None)
  Receive Date: 20100712
  Receipt Date: 20100629
  Transmission Date: 20110219
  Serious: Yes (Other)
  Sender: FDA-Public Use
  Company Number: JP-ROCHE-713332

PATIENT
  Age: 73 Year
  Sex: Female

DRUGS (3)
  1. HERCEPTIN [Suspect]
     Indication: BREAST CANCER RECURRENT
     Dosage: DOSAGE UNCERTAIN
     Route: 041
     Dates: start: 20100422
  2. XELODA [Suspect]
     Indication: BREAST CANCER RECURRENT
     Dosage: DRUG XELODA 300; DOSAGE UNCERTAIN
     Route: 048
  3. NAVELBINE [Concomitant]
     Dosage: DOSAGE UNCERTAIN
     Route: 041

REACTIONS (3)
  - BRAIN NATRIURETIC PEPTIDE INCREASED [None]
  - EJECTION FRACTION DECREASED [None]
  - PALMAR-PLANTAR ERYTHRODYSAESTHESIA SYNDROME [None]
